FAERS Safety Report 9310296 (Version 2)
Quarter: 2013Q2

REPORT INFORMATION
  Report Type: Spontaneous
  Country: US (occurrence: US)
  Receive Date: 20130527
  Receipt Date: 20130617
  Transmission Date: 20140414
  Serious: Yes (Other)
  Sender: FDA-Public Use
  Company Number: US-PFIZER INC-2013159955

PATIENT
  Age: 58 Year
  Sex: Female
  Weight: 52.15 kg

DRUGS (4)
  1. NEURONTIN [Suspect]
     Indication: NEUROPATHY PERIPHERAL
     Dosage: UNK
     Route: 048
  2. NEURONTIN [Suspect]
     Indication: MULTIPLE SCLEROSIS
  3. AMITRIPTYLINE [Concomitant]
     Indication: MULTIPLE SCLEROSIS
     Dosage: UNK
  4. AMITRIPTYLINE [Concomitant]
     Indication: NEUROPATHY PERIPHERAL

REACTIONS (5)
  - Off label use [Unknown]
  - Breast cancer [Unknown]
  - Irritable bowel syndrome [Unknown]
  - Balance disorder [Unknown]
  - Coordination abnormal [Unknown]
